FAERS Safety Report 20642379 (Version 2)
Quarter: 2024Q1

REPORT INFORMATION
  Report Type: Report from Study
  Country: US (occurrence: US)
  Receive Date: 20220328
  Receipt Date: 20240105
  Transmission Date: 20240410
  Serious: Yes (Hospitalization)
  Sender: FDA-Public Use
  Company Number: US-NOVARTISPH-NVSC2022US068765

PATIENT
  Sex: Female

DRUGS (1)
  1. PROMACTA [Suspect]
     Active Substance: ELTROMBOPAG OLAMINE
     Indication: Product used for unknown indication
     Dosage: UNK
     Route: 065

REACTIONS (7)
  - Cardiac arrest [Unknown]
  - Pneumonia [Unknown]
  - Respiratory arrest [Unknown]
  - Fall [Unknown]
  - Hip fracture [Unknown]
  - Platelet count decreased [Unknown]
  - Pain [Unknown]
